FAERS Safety Report 5654488-9 (Version None)
Quarter: 2008Q1

REPORT INFORMATION
  Report Type: 
  Country: None (occurrence: None)
  Receive Date: 20080205
  Receipt Date: 20070404
  Transmission Date: 20080703
  Serious: Yes (Life-Threatening)
  Sender: FDA-Public Use
  Company Number: MEDI-0005475

PATIENT
  Age: 52 Year
  Sex: Male
  Weight: 73.5 kg

DRUGS (7)
  1. ETHYOL [Suspect]
     Indication: DRY MOUTH
     Dosage: 500 MG, 5 IN 5 D, SUBCUTANEOUS; 500 MG, 5 IN 5 D, SUBCUTANEOUS
     Route: 058
     Dates: start: 20060808, end: 20060810
  2. ETHYOL [Suspect]
     Indication: PROPHYLAXIS
     Dosage: 500 MG, 5 IN 5 D, SUBCUTANEOUS; 500 MG, 5 IN 5 D, SUBCUTANEOUS
     Route: 058
     Dates: start: 20060808, end: 20060810
  3. ETHYOL [Suspect]
     Indication: DRY MOUTH
     Dosage: 500 MG, 5 IN 5 D, SUBCUTANEOUS; 500 MG, 5 IN 5 D, SUBCUTANEOUS
     Route: 058
     Dates: start: 20060811, end: 20060901
  4. ETHYOL [Suspect]
     Indication: PROPHYLAXIS
     Dosage: 500 MG, 5 IN 5 D, SUBCUTANEOUS; 500 MG, 5 IN 5 D, SUBCUTANEOUS
     Route: 058
     Dates: start: 20060811, end: 20060901
  5. LORATIDINE (LORATIDINE) [Concomitant]
  6. RADIATION THERAPY [Concomitant]
  7. LORATIDINE (LORATIDINE) [Concomitant]

REACTIONS (5)
  - HEADACHE [None]
  - HYPOTENSION [None]
  - INJECTION SITE ERYTHEMA [None]
  - INJECTION SITE RASH [None]
  - PHARYNGOLARYNGEAL PAIN [None]
